FAERS Safety Report 19228214 (Version 3)
Quarter: 2024Q2

REPORT INFORMATION
  Report Type: Spontaneous
  Country: AE (occurrence: AE)
  Receive Date: 20210507
  Receipt Date: 20240624
  Transmission Date: 20240716
  Serious: Yes (Other)
  Sender: FDA-Public Use
  Company Number: AE-ALIMERA SCIENCES INC.-AE-A16013-21-000090

PATIENT
  Age: 38 Year
  Sex: Female

DRUGS (1)
  1. ILUVIEN [Suspect]
     Active Substance: FLUOCINOLONE ACETONIDE
     Indication: Uveitis
     Dosage: 0.25 MICROGRAM, QD - RIGHT EYE
     Route: 031
     Dates: start: 201809

REACTIONS (5)
  - Posterior capsule opacification [Recovered/Resolved]
  - Laser therapy [Recovered/Resolved]
  - Vitrectomy [Recovered/Resolved]
  - Vitreous opacities [Unknown]
  - Off label use [Unknown]
